FAERS Safety Report 8142113-7 (Version None)
Quarter: 2012Q1

REPORT INFORMATION
  Report Type: 
  Country: None (occurrence: None)
  Receive Date: 20120103
  Receipt Date: 20111022
  Transmission Date: 20120608
  Serious: No
  Sender: FDA-Public Use
  Company Number: AE-2011-002609

PATIENT
  Age: 63 Year
  Weight: 65.7716 kg

DRUGS (3)
  1. PEG-INTERFERON (PEGINTERFERON ALFA-2A) [Concomitant]
  2. INCIVEK [Suspect]
     Dosage: 2250 MG (750 MG,3 IN 1 D)
     Dates: start: 20111014
  3. RIBAVIRIN [Concomitant]

REACTIONS (4)
  - ANORECTAL DISCOMFORT [None]
  - ERYTHEMA [None]
  - HAEMORRHOIDS [None]
  - PRURITUS [None]
